FAERS Safety Report 6232013-1 (Version None)
Quarter: 2009Q2

REPORT INFORMATION
  Report Type: 
  Country: None (occurrence: None)
  Receive Date: 20090612
  Receipt Date: 20090528
  Transmission Date: 20091009
  Serious: Yes (Other)
  Sender: FDA-Public Use
  Company Number: HQWYE336101MAR07

PATIENT
  Age: 68 Year
  Sex: Male

DRUGS (9)
  1. AMIODARONE HCL [Suspect]
     Dosage: 200 MG 1X PER 1 DAY, UNKNOWN
  2. ACIPIMOX (ACIPIMOX, ) [Suspect]
     Dosage: 250 MG 2X PER 1 DAY, UNKNOWN
  3. ASPIRIN [Suspect]
     Dosage: 75 MG 1X PER 1 DAY, UNKNOWN
  4. BISOPROLOL (BISOPROLOL, TABLET, UNSPEC) [Suspect]
     Dosage: 7.5 MG 1X PER 1 DAY, UNKNOWN
  5. DIGOXIN [Suspect]
     Dosage: 0.125 MG 1X PER 1 DAY, UNKNOWN
  6. EZETIMIBE [Suspect]
     Dosage: 10 MG 1X PER 1 DAY, UNKNOWN
  7. FUROSEMIDE [Suspect]
     Dosage: 80 MG 2X PER 1 DAY, UNKNOWN, 120 MG 2X PER 1 DAY, UNKNOWN
  8. LANSOPRAZOLE [Suspect]
     Dosage: 30 MG 1X PER 1 DAY, UNKNOWN
  9. PERINDOPRIL ERBUMINE [Suspect]
     Dosage: 2 MG 1X PER 1 DAY, UNKNOWN

REACTIONS (5)
  - ATRIAL FIBRILLATION [None]
  - CARDIAC MURMUR [None]
  - LEFT VENTRICULAR FAILURE [None]
  - PARAESTHESIA [None]
  - VENTRICULAR TACHYCARDIA [None]
